FAERS Safety Report 7495938-5 (Version None)
Quarter: 2011Q2

REPORT INFORMATION
  Report Type: 
  Country: None (occurrence: None)
  Receive Date: 20110523
  Receipt Date: 20110509
  Transmission Date: 20111010
  Serious: Yes (Other)
  Sender: FDA-Public Use
  Company Number: CA-JNJFOC-20110504745

PATIENT
  Sex: Female
  Weight: 62.9 kg

DRUGS (6)
  1. ZOPICLONE [Concomitant]
  2. REMICADE [Suspect]
     Indication: COLITIS ULCERATIVE
     Route: 042
     Dates: start: 20061003
  3. ASPIRIN [Concomitant]
  4. PERINDOPRIL ERBUMINE [Concomitant]
  5. ATACAND [Concomitant]
  6. REMICADE [Suspect]
     Route: 042
     Dates: start: 20110501

REACTIONS (1)
  - LUNG DISORDER [None]
